FAERS Safety Report 6694350-6 (Version None)
Quarter: 2010Q2

REPORT INFORMATION
  Report Type: 
  Country: None (occurrence: None)
  Receive Date: 20100421
  Receipt Date: 20100402
  Transmission Date: 20101027
  Serious: Yes (Other)
  Sender: FDA-Public Use
  Company Number: ZYD-10-AE-085

PATIENT
  Age: 47 Year
  Sex: Female

DRUGS (1)
  1. DIVALPROEX SODIUM 125MG SPRINKLE CAPSULE (ZYDUS) [Suspect]
     Indication: BIPOLAR DISORDER
     Dosage: 2 CAPSULES, QAM, ORAL
     Route: 048
     Dates: start: 20090401

REACTIONS (4)
  - DRUG INEFFECTIVE FOR UNAPPROVED INDICATION [None]
  - INSOMNIA [None]
  - MEMORY IMPAIRMENT [None]
  - TRANSIENT ISCHAEMIC ATTACK [None]
